FAERS Safety Report 15783575 (Version 2)
Quarter: 2019Q1

REPORT INFORMATION
  Report Type: Spontaneous
  Country: US (occurrence: US)
  Receive Date: 20190102
  Receipt Date: 20190213
  Transmission Date: 20190417
  Serious: Yes (Other)
  Sender: FDA-Public Use
  Company Number: US-009507513-1812USA012526

PATIENT
  Age: 23 Year
  Sex: Female
  Weight: 149.66 kg

DRUGS (1)
  1. NEXPLANON [Suspect]
     Active Substance: ETONOGESTREL
     Indication: CONTRACEPTION
     Dosage: 1 IMPLANT, EVERY 3 YEARS, INSERTED IN THE LEFT ARM
     Route: 059
     Dates: start: 20170906, end: 20181226

REACTIONS (3)
  - Cholecystectomy [Unknown]
  - Device breakage [Recovered/Resolved]
  - Device deployment issue [Recovered/Resolved]

NARRATIVE: CASE EVENT DATE: 20170906
